FAERS Safety Report 13550815 (Version 2)
Quarter: 2017Q2

REPORT INFORMATION
  Report Type: Spontaneous
  Country: CA (occurrence: CA)
  Receive Date: 20170516
  Receipt Date: 20170522
  Transmission Date: 20170830
  Serious: Yes (Hospitalization, Other)
  Sender: FDA-Public Use
  Company Number: CA-JNJFOC-20170509678

PATIENT
  Age: 53 Year
  Sex: Female

DRUGS (12)
  1. INVOKANA [Suspect]
     Active Substance: CANAGLIFLOZIN
     Indication: TYPE 2 DIABETES MELLITUS
     Route: 048
  2. CELECOXIB. [Concomitant]
     Active Substance: CELECOXIB
     Route: 065
  3. LOSARTAN. [Concomitant]
     Active Substance: LOSARTAN
     Route: 065
  4. QUETIAPINE. [Concomitant]
     Active Substance: QUETIAPINE
     Route: 065
  5. INSULIN [Suspect]
     Active Substance: INSULIN NOS
     Indication: PRODUCT USED FOR UNKNOWN INDICATION
     Route: 065
  6. DULOXETINE. [Concomitant]
     Active Substance: DULOXETINE
     Route: 065
  7. ATENOLOL. [Concomitant]
     Active Substance: ATENOLOL
     Indication: BLOOD PRESSURE ABNORMAL
     Route: 065
  8. GLYBURIDE. [Concomitant]
     Active Substance: GLYBURIDE
     Route: 065
  9. METFORMIN [Concomitant]
     Active Substance: METFORMIN HYDROCHLORIDE
     Route: 065
  10. TRAZODONE [Concomitant]
     Active Substance: TRAZODONE HYDROCHLORIDE
     Route: 065
  11. LORAZEPAM. [Concomitant]
     Active Substance: LORAZEPAM
     Route: 065
  12. NIFEDIPINE. [Concomitant]
     Active Substance: NIFEDIPINE
     Route: 065

REACTIONS (14)
  - Depressed level of consciousness [Recovered/Resolved]
  - Blood glucose increased [Recovered/Resolved]
  - Coordination abnormal [Recovered/Resolved]
  - Blood bicarbonate decreased [Recovered/Resolved]
  - Palpitations [Recovered/Resolved]
  - Weight decreased [Recovered/Resolved]
  - Fatigue [Recovered/Resolved]
  - Diabetic ketoacidosis [Recovered/Resolved]
  - Nausea [Recovered/Resolved]
  - Halo vision [Recovered/Resolved]
  - Dyspnoea [Recovered/Resolved]
  - Photophobia [Recovered/Resolved]
  - Blood pH decreased [Recovered/Resolved]
  - Vomiting [Recovered/Resolved]
